FAERS Safety Report 6385410-8 (Version None)
Quarter: 2009Q4

REPORT INFORMATION
  Report Type: 
  Country: None (occurrence: None)
  Receive Date: 20091002
  Receipt Date: 20080826
  Transmission Date: 20100525
  Serious: No
  Sender: FDA-Public Use
  Company Number: US-ASTRAZENECA-2008UW17567

PATIENT
  Age: 81 Year
  Sex: Female
  Weight: 68 kg

DRUGS (9)
  1. ARIMIDEX [Suspect]
     Indication: BREAST CANCER
     Route: 048
     Dates: start: 20071001
  2. LASIX [Concomitant]
     Dosage: 40 MG
  3. LEVOTHYROXINE SODIUM [Concomitant]
  4. PLAVIX [Concomitant]
  5. LISINOPRIL [Concomitant]
  6. PREVACID [Concomitant]
  7. VYTORIN [Concomitant]
  8. VITAMINS [Concomitant]
  9. ASPIRIN [Concomitant]

REACTIONS (4)
  - ARTHRITIS [None]
  - BODY HEIGHT DECREASED [None]
  - MYALGIA [None]
  - OEDEMA PERIPHERAL [None]
